FAERS Safety Report 4280014-5 (Version None)
Quarter: 2004Q1

REPORT INFORMATION
  Report Type: 
  Country: None (occurrence: None)
  Receive Date: 20040121
  Receipt Date: 20040114
  Transmission Date: 20041129
  Serious: Yes (Hospitalization, Other)
  Sender: FDA-Public Use
  Company Number: JP-JNJFOC-20031101198

PATIENT
  Age: 64 Year
  Sex: Male

DRUGS (13)
  1. ITRIZOLE (ITRACONAZOLE) UNSPECIFIED [Suspect]
     Indication: NAIL DISCOLOURATION
     Dosage: 100 MG, IN 1 DAY, ORAL
     Route: 048
     Dates: start: 20031021, end: 20031027
  2. ITRIZOLE (ITRACONAZOLE) UNSPECIFIED [Suspect]
     Indication: ONYCHOMYCOSIS
     Dosage: 100 MG, IN 1 DAY, ORAL
     Route: 048
     Dates: start: 20031021, end: 20031027
  3. VALPROATE SODIUM [Suspect]
     Indication: EPILEPSY
     Dosage: 1200 MG, IN 1 DAY, ORAL
     Route: 048
     Dates: start: 20020728
  4. MAGNESIUM OXIDE (MAGNESIUM OXIDE) [Suspect]
     Indication: CONSTIPATION
     Dosage: 3 G, IN 1 DAY, ORAL
     Route: 048
     Dates: start: 20020728
  5. ESTAZOLAM [Suspect]
     Indication: INSOMNIA
     Dosage: 2 MG, IN 1 DAY, ORAL
     Route: 048
     Dates: start: 20030514
  6. NITRAZEPAM [Suspect]
     Indication: INSOMNIA
     Dosage: 15 MG, IN 1 DAY ORAL
     Route: 048
     Dates: start: 20020728
  7. CHLORPROMAZINE AND PREPARATIONS (CHLORPROMAZINE) [Suspect]
     Indication: INSOMNIA
     Dosage: 100 MG, IN 1 DAY, ORAL
     Route: 048
     Dates: start: 20020728
  8. BIPERIDEN HYDROCHLORIDE TAB [Suspect]
     Indication: PARKINSON'S DISEASE
     Dosage: 1 MG, IN 1 DAY, ORAL
     Route: 048
     Dates: start: 20020728
  9. SENNOSIDE (ALL OTHER THERAPEUTIC PRODUCTS) [Suspect]
     Indication: CONSTIPATION
     Dosage: 24 MG, IN 1 DAY
     Dates: start: 20020728
  10. FAMOTIDINE [Suspect]
     Indication: GASTRITIS EROSIVE
     Dosage: 20 MG, IN 1 DAY
     Dates: start: 20020728
  11. ORCIPRENALINE SULFATE (ORCIPRENALINE SULFATE) [Suspect]
     Indication: ASTHMA
     Dosage: 80 MG, IN 1 DAY
     Dates: start: 20030404
  12. NITROGLYCERIN [Suspect]
     Indication: MYOCARDIAL ISCHAEMIA
     Dosage: 5 MG, IN 1 DAY
     Dates: start: 20020728
  13. TERBINAFINE HCL [Suspect]
     Indication: TINEA PEDIS
     Dates: start: 20031010

REACTIONS (10)
  - ARTHRALGIA [None]
  - BACK PAIN [None]
  - BUNDLE BRANCH BLOCK RIGHT [None]
  - DRUG INEFFECTIVE [None]
  - ERYTHEMA [None]
  - HYPERHIDROSIS [None]
  - NEUROLEPTIC MALIGNANT SYNDROME [None]
  - OEDEMA PERIPHERAL [None]
  - ONYCHOMYCOSIS [None]
  - SKIN DISCOLOURATION [None]
